FAERS Safety Report 13478727 (Version 3)
Quarter: 2017Q2

REPORT INFORMATION
  Report Type: Spontaneous
  Country: US (occurrence: US)
  Receive Date: 20170425
  Receipt Date: 20170518
  Transmission Date: 20170830
  Serious: Yes (Hospitalization, Other)
  Sender: FDA-Public Use
  Company Number: US-009507513-1704USA012611

PATIENT
  Age: 71 Year
  Sex: Female

DRUGS (6)
  1. FOSAMAX [Suspect]
     Active Substance: ALENDRONATE SODIUM
     Indication: OSTEOPOROSIS
     Dosage: 70 MG ONCE A WEEK
     Route: 048
     Dates: end: 201403
  2. VITAMINS (UNSPECIFIED) [Concomitant]
     Active Substance: VITAMINS
     Dosage: 1 A DAY
  3. GABAPENTIN. [Concomitant]
     Active Substance: GABAPENTIN
     Indication: SEIZURE
     Dosage: 1-3- TIMES A DAY
  4. CHOLECALCIFEROL [Concomitant]
     Active Substance: CHOLECALCIFEROL
     Dosage: 1 A DAY
  5. DILANTIN (PHENYTOIN) [Concomitant]
     Indication: SEIZURE
     Dosage: 1-3 TIMES A DAY
     Dates: start: 1977
  6. TRAMADON [Concomitant]
     Dosage: UNK, 12 TIMES A DAY

REACTIONS (2)
  - Fall [Unknown]
  - Femur fracture [Unknown]

NARRATIVE: CASE EVENT DATE: 20160530
